FAERS Safety Report 8494678-3 (Version None)
Quarter: 2012Q3

REPORT INFORMATION
  Report Type: 
  Country: None (occurrence: None)
  Receive Date: 20120709
  Receipt Date: 20120702
  Transmission Date: 20120928
  Serious: Yes (Hospitalization)
  Sender: FDA-Public Use
  Company Number: US-BAYER-2012-044347

PATIENT
  Age: 39 Year
  Sex: Female

DRUGS (7)
  1. DROSPIRENONE AND ETHINYL ESTRADIOL [Suspect]
     Dosage: UNK
     Dates: start: 20031111, end: 20090208
  2. PRILOSEC [Concomitant]
  3. YASMIN [Suspect]
     Dosage: UNK
     Dates: start: 20031111, end: 20090208
  4. PROPOXYPHENE HCL AND ACETAMINOPHEN [Concomitant]
     Dosage: 100-650 MG
  5. METOPROLOL SUCCINATE [Concomitant]
     Dosage: 25 MG
  6. IBUPROFEN (ADVIL) [Concomitant]
  7. TOPROL-XL [Concomitant]

REACTIONS (5)
  - DEEP VEIN THROMBOSIS [None]
  - PAIN [None]
  - EMOTIONAL DISTRESS [None]
  - ANHEDONIA [None]
  - INJURY [None]
